FAERS Safety Report 11540372 (Version 1)
Quarter: 2015Q3

REPORT INFORMATION
  Report Type: Spontaneous
  Country: US (occurrence: US)
  Receive Date: 20150923
  Receipt Date: 20150923
  Transmission Date: 20151125
  Serious: No
  Sender: FDA-Public Use
  Company Number: US-BEH-2014044707

PATIENT
  Sex: Female
  Weight: 80 kg

DRUGS (29)
  1. FISH OIL [Concomitant]
     Active Substance: FISH OIL
  2. NORVASC [Concomitant]
     Active Substance: AMLODIPINE BESYLATE
  3. MULTIVITAMIN [Concomitant]
     Active Substance: VITAMINS
  4. LIDOCAINE/PRILOCAINE [Concomitant]
  5. SODIUM CHLORIDE. [Concomitant]
     Active Substance: SODIUM CHLORIDE
  6. METFORMIN [Concomitant]
     Active Substance: METFORMIN HYDROCHLORIDE
  7. ACETAMINOPHEN. [Concomitant]
     Active Substance: ACETAMINOPHEN
  8. DIPHENHYDRAMINE. [Concomitant]
     Active Substance: DIPHENHYDRAMINE
  9. EPIPEN [Concomitant]
     Active Substance: EPINEPHRINE
  10. MELOXICAM. [Concomitant]
     Active Substance: MELOXICAM
  11. ZYRTEC-D [Concomitant]
     Active Substance: CETIRIZINE HYDROCHLORIDE\PSEUDOEPHEDRINE HYDROCHLORIDE
  12. ALL OTHER THERAPEUTIC PRODUCTS [Concomitant]
     Active Substance: UNSPECIFIED INGREDIENT
  13. COREG [Concomitant]
     Active Substance: CARVEDILOL
  14. LMX [Concomitant]
     Active Substance: LIDOCAINE
  15. METHOCARBAMOL. [Concomitant]
     Active Substance: METHOCARBAMOL
  16. LISINOPRIL. [Concomitant]
     Active Substance: LISINOPRIL
  17. GLIMEPIRIDE. [Concomitant]
     Active Substance: GLIMEPIRIDE
  18. CRESTOR [Concomitant]
     Active Substance: ROSUVASTATIN CALCIUM
  19. LEVOTHYROXINE. [Concomitant]
     Active Substance: LEVOTHYROXINE
  20. HYDROCHLOROTHIAZIDE. [Concomitant]
     Active Substance: HYDROCHLOROTHIAZIDE
  21. TERBINAFINE. [Concomitant]
     Active Substance: TERBINAFINE
  22. PRIVIGEN [Suspect]
     Active Substance: HUMAN IMMUNOGLOBULIN G
     Indication: HYPOGLOBULINAEMIA
     Route: 042
  23. ASTELIN [Concomitant]
     Active Substance: AZELASTINE HYDROCHLORIDE
  24. ZYFLO [Concomitant]
     Active Substance: ZILEUTON
  25. CALCIUM [Concomitant]
     Active Substance: CALCIUM
  26. ASPIRIN. [Concomitant]
     Active Substance: ASPIRIN
  27. FLONASE [Concomitant]
     Active Substance: FLUTICASONE PROPIONATE
  28. VITAMIN D3 [Concomitant]
     Active Substance: CHOLECALCIFEROL
  29. ALEVE [Concomitant]
     Active Substance: NAPROXEN SODIUM

REACTIONS (1)
  - Headache [Recovered/Resolved]
